FAERS Safety Report 10311129 (Version 2)
Quarter: 2014Q4

REPORT INFORMATION
  Report Type: Spontaneous
  Country: US (occurrence: US)
  Receive Date: 20140717
  Receipt Date: 20141023
  Transmission Date: 20150528
  Serious: Yes (Hospitalization, Other)
  Sender: FDA-Public Use
  Company Number: US-GLAXOSMITHKLINE-A1071380A

PATIENT
  Age: 59 Year
  Sex: Female
  Weight: 46 kg

DRUGS (39)
  1. PROLIA [Suspect]
     Active Substance: DENOSUMAB
     Indication: OSTEOPOROSIS
     Dosage: 60 MG
     Route: 058
     Dates: start: 20120624, end: 20121224
  2. POTASSIUM CHLORIDE. [Concomitant]
     Active Substance: POTASSIUM CHLORIDE
  3. ZOFRAN [Concomitant]
     Active Substance: ONDANSETRON HYDROCHLORIDE
  4. MAGNESIUM OXIDE. [Concomitant]
     Active Substance: MAGNESIUM OXIDE
  5. ALLEGRA [Concomitant]
     Active Substance: FEXOFENADINE HYDROCHLORIDE
  6. ZYRTEC [Concomitant]
     Active Substance: CETIRIZINE HYDROCHLORIDE
  7. PROLIA [Suspect]
     Active Substance: DENOSUMAB
     Indication: OSTEOPOROSIS
  8. EYE DROPS [Concomitant]
     Active Substance: TETRAHYDROZOLINE HYDROCHLORIDE
  9. MAXALT [Concomitant]
     Active Substance: RIZATRIPTAN BENZOATE
  10. CHLORHEXIDINE [Concomitant]
     Active Substance: CHLORHEXIDINE
  11. TYLENOL [Concomitant]
     Active Substance: ACETAMINOPHEN
  12. FLUCONAZOLE. [Concomitant]
     Active Substance: FLUCONAZOLE
  13. RECLAST [Concomitant]
     Active Substance: ZOLEDRONIC ACID
  14. CLOTRIMAZOLE. [Concomitant]
     Active Substance: CLOTRIMAZOLE
  15. ACETAMINOPHEN. [Concomitant]
     Active Substance: ACETAMINOPHEN
  16. STEROID [Concomitant]
     Active Substance: UNSPECIFIED INGREDIENT
     Route: 014
  17. PREDNISONE. [Suspect]
     Active Substance: PREDNISONE
     Indication: SYSTEMIC LUPUS ERYTHEMATOSUS
     Dosage: 15 MG TOTAL DAILY DOSE
     Route: 048
     Dates: start: 2007
  18. COLCHICINE. [Suspect]
     Active Substance: COLCHICINE
     Indication: PERICARDITIS
     Dosage: 0.6 MG, QD
     Route: 048
     Dates: start: 201401, end: 201401
  19. MESTINON [Concomitant]
     Active Substance: PYRIDOSTIGMINE BROMIDE
  20. MYFORTIC [Concomitant]
     Active Substance: MYCOPHENOLATE SODIUM
  21. CENTRUM [Concomitant]
     Active Substance: VITAMINS
  22. VENOFER [Concomitant]
     Active Substance: IRON SUCROSE
  23. ADVAIR HFA [Concomitant]
     Active Substance: FLUTICASONE PROPIONATE\SALMETEROL XINAFOATE
  24. ASTELIN [Concomitant]
     Active Substance: AZELASTINE HYDROCHLORIDE
  25. BENLYSTA [Suspect]
     Active Substance: BELIMUMAB
     Indication: SYSTEMIC LUPUS ERYTHEMATOSUS
     Dosage: 10 MG/KG AT 450 MG INTRAVENOUSLY;2 WEEKS, THEN EVERY 4 WEEKS
     Route: 042
     Dates: start: 20130828, end: 20140408
  26. PROTONIX [Concomitant]
     Active Substance: PANTOPRAZOLE SODIUM
  27. MYCOPHENOLATE [Concomitant]
     Active Substance: MYCOPHENOLIC ACID
  28. CARAFATE [Concomitant]
     Active Substance: SUCRALFATE
  29. MEPRON [Concomitant]
     Active Substance: ATOVAQUONE
  30. CALTRATE WITH VITAMIN D [Concomitant]
     Active Substance: CALCIUM CARBONATE\VITAMIN D
  31. MULTIVITAMINS [Concomitant]
     Active Substance: VITAMINS
  32. SOLU-MEDROL [Concomitant]
     Active Substance: METHYLPREDNISOLONE SODIUM SUCCINATE
     Dates: start: 20131101
  33. QUINACRINE HYDROCHLORIDE [Suspect]
     Active Substance: QUINACRINE HYDROCHLORIDE
     Indication: SYSTEMIC LUPUS ERYTHEMATOSUS
     Dosage: UNK UNK, QD
     Dates: start: 201404, end: 201404
  34. IMODIUM [Concomitant]
     Active Substance: LOPERAMIDE HYDROCHLORIDE
  35. IVIG [Concomitant]
     Active Substance: HUMAN IMMUNOGLOBULIN G
  36. QUINACRINE HYDROCHLORIDE [Concomitant]
     Active Substance: QUINACRINE HYDROCHLORIDE
  37. VITAMIN B12 [Concomitant]
     Active Substance: CYANOCOBALAMIN
  38. ALBUTEROL. [Concomitant]
     Active Substance: ALBUTEROL
  39. KETOCONAZOLE. [Concomitant]
     Active Substance: KETOCONAZOLE

REACTIONS (37)
  - Diarrhoea [Not Recovered/Not Resolved]
  - Lymphocyte count decreased [Unknown]
  - Epistaxis [Unknown]
  - Systemic lupus erythematosus [Not Recovered/Not Resolved]
  - Drug ineffective [Unknown]
  - Dacryocystitis [Recovered/Resolved]
  - Salmonellosis [Unknown]
  - Respiratory muscle weakness [Not Recovered/Not Resolved]
  - Protein total decreased [Unknown]
  - Sinus operation [Unknown]
  - Pancreatic atrophy [Unknown]
  - Light chain analysis [Not Recovered/Not Resolved]
  - Eye infection [Recovered/Resolved]
  - Rotator cuff repair [Unknown]
  - Nausea [Unknown]
  - Pyrexia [Unknown]
  - Chills [Unknown]
  - Lymphopenia [Unknown]
  - Actinic keratosis [Recovering/Resolving]
  - Sinusitis [Unknown]
  - Sinusitis [Recovered/Resolved]
  - Infusion related reaction [Not Recovered/Not Resolved]
  - Rhinorrhoea [Unknown]
  - Systemic lupus erythematosus [Not Recovered/Not Resolved]
  - B-lymphocyte count decreased [Unknown]
  - Serratia bacteraemia [Unknown]
  - Nasal congestion [Unknown]
  - Oesophageal candidiasis [Unknown]
  - Dyspnoea exertional [Not Recovered/Not Resolved]
  - Urinary tract infection [Unknown]
  - Pericarditis [Unknown]
  - Skin lesion [Recovering/Resolving]
  - Blood immunoglobulin A decreased [Unknown]
  - Muscular weakness [Unknown]
  - Adenoma benign [Unknown]
  - CD4 lymphocytes decreased [Unknown]
  - Adverse drug reaction [Not Recovered/Not Resolved]

NARRATIVE: CASE EVENT DATE: 2012
